FAERS Safety Report 7274360-0 (Version None)
Quarter: 2011Q1

REPORT INFORMATION
  Report Type: 
  Country: None (occurrence: None)
  Receive Date: 20110131
  Receipt Date: 20110131
  Transmission Date: 20110831
  Serious: Yes (Death)
  Sender: FDA-Public Use
  Company Number: None

PATIENT
  Sex: Female

DRUGS (16)
  1. ZOLPIDEM [Concomitant]
  2. METOPROLOL TARTRATE [Concomitant]
  3. LEVOTHYROXINE SODIUM [Concomitant]
  4. INSULIN [Concomitant]
  5. OXYCODONE HCL AND ACETAMINOPHEN [Concomitant]
  6. MAGNESIUM OXIDE [Concomitant]
  7. REVLIMID [Suspect]
     Indication: MULTIPLE MYELOMA
     Dosage: REVLIMID 10MG PO DAILY X 21D ORAL
     Route: 048
     Dates: start: 20100201, end: 20100501
  8. REVLIMID [Suspect]
     Indication: MULTIPLE MYELOMA
     Dosage: REVLIMID 10MG PO DAILY X 21D ORAL
     Route: 048
     Dates: start: 20070901, end: 20071201
  9. REVLIMID [Suspect]
     Indication: MULTIPLE MYELOMA
     Dosage: REVLIMID 10MG PO DAILY X 21D ORAL
     Route: 048
     Dates: start: 20100625, end: 20100629
  10. DIGOXIN [Concomitant]
  11. CALCITONIN [Concomitant]
  12. MORPHINE [Concomitant]
  13. FORTICAL [Concomitant]
  14. OMEPRAZOLE [Concomitant]
  15. DEXAMETHAXONE [Concomitant]
  16. CHLORPHENIRAMINE MALEATE [Concomitant]

REACTIONS (10)
  - ACUTE MYOCARDIAL INFARCTION [None]
  - THROMBOCYTOPENIA [None]
  - HEPATIC FAILURE [None]
  - HYPOPHAGIA [None]
  - LETHARGY [None]
  - RENAL FAILURE ACUTE [None]
  - CONFUSIONAL STATE [None]
  - CHEST PAIN [None]
  - MUSCULOSKELETAL CHEST PAIN [None]
  - MENTAL STATUS CHANGES [None]
